FAERS Safety Report 11438036 (Version 18)
Quarter: 2016Q3

REPORT INFORMATION
  Report Type: Report from Study
  Country: DE (occurrence: KR)
  Receive Date: 20150831
  Receipt Date: 20160919
  Transmission Date: 20161109
  Serious: Yes (Hospitalization, Other)
  Sender: FDA-Public Use
  Company Number: DE-ACTELION-A-US2015-123316

PATIENT
  Age: 54 Year
  Sex: Male

DRUGS (2)
  1. VENTAVIS [Suspect]
     Active Substance: ILOPROST
     Dosage: UNK
     Route: 055
     Dates: start: 20160419
  2. VENTAVIS [Suspect]
     Active Substance: ILOPROST
     Indication: PULMONARY ARTERIAL HYPERTENSION
     Dosage: UNK
     Route: 055
     Dates: start: 20150605

REACTIONS (25)
  - Heart rate increased [Not Recovered/Not Resolved]
  - Furuncle [Not Recovered/Not Resolved]
  - Renal function test abnormal [Recovering/Resolving]
  - Dyspnoea [Recovering/Resolving]
  - Dry eye [Not Recovered/Not Resolved]
  - Eye pain [Not Recovered/Not Resolved]
  - Blood test abnormal [Not Recovered/Not Resolved]
  - Sleep disorder [Not Recovered/Not Resolved]
  - Pruritus [Recovered/Resolved]
  - Chest discomfort [Recovered/Resolved]
  - Decreased appetite [Not Recovered/Not Resolved]
  - Dizziness [Not Recovered/Not Resolved]
  - Weight decreased [Not Recovered/Not Resolved]
  - Productive cough [Not Recovered/Not Resolved]
  - Cough [Not Recovered/Not Resolved]
  - Dyspepsia [Recovering/Resolving]
  - Stress [Unknown]
  - Arrhythmia [Recovered/Resolved]
  - Renal impairment [Unknown]
  - Ascites [Not Recovered/Not Resolved]
  - Swelling [Not Recovered/Not Resolved]
  - Chest pain [Recovered/Resolved]
  - Visual acuity reduced [Unknown]
  - Oedema peripheral [Not Recovered/Not Resolved]
  - Pruritus [Not Recovered/Not Resolved]

NARRATIVE: CASE EVENT DATE: 2015
